FAERS Safety Report 11104832 (Version 2)
Quarter: 2015Q4

REPORT INFORMATION
  Report Type: Spontaneous
  Country: US (occurrence: US)
  Receive Date: 20150511
  Receipt Date: 20151021
  Transmission Date: 20160304
  Serious: Yes (Hospitalization)
  Sender: FDA-Public Use
  Company Number: US-PFIZER INC-2015154980

PATIENT
  Age: 52 Year
  Sex: Female

DRUGS (3)
  1. VALSARTAN AND HYDROCHLOROTHIAZIDE [Concomitant]
     Active Substance: HYDROCHLOROTHIAZIDE\VALSARTAN
     Indication: BLOOD PRESSURE INCREASED
     Dosage: HYDROCHLOROTHIAZIDE 12.5 MG, VALSARTAN 160 MG, 1X/DAY
  2. EFFEXOR XR [Suspect]
     Active Substance: VENLAFAXINE HYDROCHLORIDE
     Indication: SLEEP DISORDER
     Dosage: 150 MG, 1X/DAY
     Dates: start: 2005
  3. EFFEXOR XR [Suspect]
     Active Substance: VENLAFAXINE HYDROCHLORIDE
     Indication: SEIZURE

REACTIONS (4)
  - Therapeutic response unexpected [Not Recovered/Not Resolved]
  - Drug prescribing error [Unknown]
  - Product use issue [Unknown]
  - Pre-existing condition improved [Not Recovered/Not Resolved]

NARRATIVE: CASE EVENT DATE: 2005
